FAERS Safety Report 9254659 (Version 1)
Quarter: 2013Q2

REPORT INFORMATION
  Report Type: Spontaneous
  Country: FR (occurrence: FR)
  Receive Date: 20130425
  Receipt Date: 20130425
  Transmission Date: 20140414
  Serious: Yes (Disabling)
  Sender: FDA-Public Use
  Company Number: FR-009507513-1303FRA012392

PATIENT
  Age: 29 Year
  Sex: Female
  Weight: 59 kg

DRUGS (2)
  1. IMPLANON [Suspect]
     Indication: PRODUCT USED FOR UNKNOWN INDICATION
     Dosage: UNK
     Dates: start: 20100113, end: 20130222
  2. NEXPLANON [Suspect]
     Indication: PRODUCT USED FOR UNKNOWN INDICATION
     Dosage: UNK
     Route: 058
     Dates: start: 20130222

REACTIONS (6)
  - Impaired healing [Unknown]
  - Inflammation [Unknown]
  - Incorrect drug administration duration [Unknown]
  - Surgery [Unknown]
  - Pain [Unknown]
  - Medical device complication [Unknown]
